FAERS Safety Report 14930797 (Version 1)
Quarter: 2018Q2

REPORT INFORMATION
  Report Type: Spontaneous
  Country: FR (occurrence: FR)
  Receive Date: 20180524
  Receipt Date: 20180524
  Transmission Date: 20180711
  Serious: Yes (Other)
  Sender: FDA-Public Use
  Company Number: FR-MERCK KGAA-2048353

PATIENT
  Age: 75 Year
  Sex: Female

DRUGS (2)
  1. NOVOTHYROX [Suspect]
     Active Substance: LEVOTHYROXINE SODIUM
     Indication: HYPOTHYROIDISM
     Dates: end: 201707
  2. NOVOTHYROX [Suspect]
     Active Substance: LEVOTHYROXINE SODIUM
     Dates: start: 2017

REACTIONS (15)
  - Blood thyroid stimulating hormone increased [Recovered/Resolved]
  - Tension headache [None]
  - Malaise [None]
  - Social problem [None]
  - Mood swings [None]
  - Depression [None]
  - Agitation [None]
  - Asthenia [None]
  - Hyperthyroidism [None]
  - Hypokinesia [None]
  - Haematocrit decreased [None]
  - Chest discomfort [None]
  - Dyspnoea [None]
  - Fatigue [None]
  - Impatience [None]

NARRATIVE: CASE EVENT DATE: 201703
